FAERS Safety Report 7043786-2 (Version None)
Quarter: 2010Q4

REPORT INFORMATION
  Report Type: 
  Country: None (occurrence: None)
  Receive Date: 20101008
  Receipt Date: 20101008
  Transmission Date: 20110411
  Serious: No
  Sender: FDA-Public Use
  Company Number: None

PATIENT
  Sex: Female
  Weight: 68.0396 kg

DRUGS (1)
  1. ACTONEL [Suspect]
     Indication: OSTEOPOROSIS
     Dosage: 35 MG 1 WEEKLY

REACTIONS (5)
  - ERYTHEMA [None]
  - HEADACHE [None]
  - PRURITUS [None]
  - RASH [None]
  - SWELLING FACE [None]
